FAERS Safety Report 7889737-X (Version None)
Quarter: 2011Q4

REPORT INFORMATION
  Report Type: 
  Country: None (occurrence: None)
  Receive Date: 20111103
  Receipt Date: 20111031
  Transmission Date: 20120403
  Serious: Yes (Hospitalization)
  Sender: FDA-Public Use
  Company Number: JP-ABBOTT-11P-087-0720626-00

PATIENT
  Sex: Female
  Weight: 42.8 kg

DRUGS (7)
  1. HUMIRA [Suspect]
     Indication: CROHN'S DISEASE
     Route: 058
     Dates: start: 20101115, end: 20101115
  2. MESALAMINE [Concomitant]
     Indication: CROHN'S DISEASE
     Route: 048
     Dates: start: 20040810
  3. HUMIRA [Suspect]
     Dates: start: 20101129, end: 20101129
  4. PARENTERAL NUTRITION THERAPY [Concomitant]
     Indication: PRODUCT USED FOR UNKNOWN INDICATION
     Dates: start: 20101202
  5. HUMIRA [Suspect]
     Dates: start: 20101214, end: 20110329
  6. ADRENAL HORMONE PREPARATIONS [Concomitant]
     Indication: CROHN'S DISEASE
  7. CLOSTRIDIUM BUTYRICUM COMBINED DRUG [Concomitant]
     Indication: CROHN'S DISEASE
     Dosage: DAILY DOSE: 2 DOSAGE FORMS
     Route: 048

REACTIONS (2)
  - STOMATITIS [None]
  - HYPOPHAGIA [None]
